FAERS Safety Report 10024489 (Version 2)
Quarter: 2019Q1

REPORT INFORMATION
  Report Type: Spontaneous
  Country: US (occurrence: US)
  Receive Date: 20140320
  Receipt Date: 20190104
  Transmission Date: 20190417
  Serious: No
  Sender: FDA-Public Use
  Company Number: US-PFIZER INC-2014078703

PATIENT
  Age: 57 Year
  Sex: Female
  Weight: 94.33 kg

DRUGS (6)
  1. LYRICA [Suspect]
     Active Substance: PREGABALIN
     Indication: MUSCLE SPASMS
     Dosage: 200 MG, 3X/DAY
     Route: 048
  2. OXYCODONE [Concomitant]
     Active Substance: OXYCODONE
     Indication: PAIN
     Dosage: UNK, (5-325MG)
  3. LYRICA [Suspect]
     Active Substance: PREGABALIN
     Dosage: UNK [SHE MAY TAKE 2 LYRICA DURING THE DAY AND ONE AT NIGHT]
  4. LYRICA [Suspect]
     Active Substance: PREGABALIN
     Indication: NEUROPATHY PERIPHERAL
     Dosage: UNK
     Route: 048
     Dates: start: 2013
  5. LYRICA [Suspect]
     Active Substance: PREGABALIN
     Indication: PAIN
     Dosage: 150 MG, 3X/DAY
     Route: 048
  6. LYRICA [Suspect]
     Active Substance: PREGABALIN
     Dosage: 300 MG, DAILY [MOST DAYS SHE TAKES TWO 150MG LYRICA A DAY BECAUSE SHE SELDOM EATS LUNCH]

REACTIONS (7)
  - Foot deformity [Not Recovered/Not Resolved]
  - Pain [Unknown]
  - Intentional product misuse [Unknown]
  - Ligament sprain [Unknown]
  - Arthritis [Unknown]
  - Weight fluctuation [Unknown]
  - Balance disorder [Unknown]
